FAERS Safety Report 10801414 (Version 1)
Quarter: 2015Q1

REPORT INFORMATION
  Report Type: Spontaneous
  Country: CH (occurrence: CH)
  Receive Date: 20150217
  Receipt Date: 20150217
  Transmission Date: 20150721
  Serious: Yes (Hospitalization)
  Sender: FDA-Public Use
  Company Number: CH-ACCORD-028657

PATIENT
  Age: 58 Year
  Sex: Male

DRUGS (16)
  1. ESCITALOPRAM [Suspect]
     Active Substance: ESCITALOPRAM OXALATE
     Indication: DEPRESSION
  2. QUETIAPINE/QUETIAPINE FUMARATE [Concomitant]
     Indication: DEPRESSION
     Dosage: INCREASED PROGRESSIVELY UP TO 1000 MG/D
  3. CANDESARTAN [Concomitant]
     Active Substance: CANDESARTAN
     Indication: HYPERTENSION
  4. ALFUZOSIN [Concomitant]
     Active Substance: ALFUZOSIN
     Indication: BENIGN PROSTATIC HYPERPLASIA
  5. TRIAMCINOLONE [Suspect]
     Active Substance: TRIAMCINOLONE
     Indication: HERNIA
     Dosage: 2 IM INJECTIONS OF 40 MG?OF TRIAMCINOLONE 1 MONTH APART
     Route: 030
  6. ZOLPIDEM [Concomitant]
     Active Substance: ZOLPIDEM\ZOLPIDEM TARTRATE
     Indication: DEPRESSION
  7. CANNABIS SATIVA [Suspect]
     Active Substance: CANNABIS SATIVA SUBSP. SATIVA FLOWERING TOP
     Indication: PRODUCT USED FOR UNKNOWN INDICATION
  8. IBUPROFEN. [Concomitant]
     Active Substance: IBUPROFEN
     Indication: HERNIA
  9. ALPRAZOLAM. [Concomitant]
     Active Substance: ALPRAZOLAM
     Indication: DEPRESSION
  10. TROSPIUM/TROSPIUM CHLORIDE [Concomitant]
     Indication: URINARY INCONTINENCE
  11. PARACETAMOL [Concomitant]
     Active Substance: ACETAMINOPHEN
     Indication: HERNIA
  12. TRAMADOL/TRAMADOL HYDROCHLORIDE [Suspect]
     Active Substance: TRAMADOL HYDROCHLORIDE
     Indication: PAIN
     Dosage: 50 MG OF TRAMADOL TWICE A DAY WAS PRESCRIBED
  13. OXAZEPAM. [Concomitant]
     Active Substance: OXAZEPAM
     Indication: DEPRESSION
     Dosage: INCREASED PROGRESSIVELY OXAZEPAM UP TO 180 MG/D
  14. METFORMIN [Concomitant]
     Active Substance: METFORMIN HYDROCHLORIDE
     Indication: TYPE 2 DIABETES MELLITUS
  15. BACLOFEN. [Concomitant]
     Active Substance: BACLOFEN
     Indication: ALCOHOLISM
  16. ATORVASTATIN [Concomitant]
     Active Substance: ATORVASTATIN
     Indication: DYSLIPIDAEMIA

REACTIONS (3)
  - Mania [Recovering/Resolving]
  - Drug screen positive [None]
  - Imprisonment [None]
